FAERS Safety Report 11712711 (Version 1)
Quarter: 2015Q4

REPORT INFORMATION
  Report Type: Spontaneous
  Country: US (occurrence: US)
  Receive Date: 20151104
  Receipt Date: 20151104
  Transmission Date: 20160304
  Serious: No
  Sender: FDA-Public Use
  Company Number: US-ELI_LILLY_AND_COMPANY-US201105004791

PATIENT
  Sex: Female

DRUGS (2)
  1. FORTEO [Suspect]
     Active Substance: TERIPARATIDE
     Dosage: 20 UG, QD
     Route: 065
  2. FORTEO [Suspect]
     Active Substance: TERIPARATIDE
     Indication: OSTEOPOROSIS
     Dosage: 20 UG, QD
     Route: 065
     Dates: start: 20110509

REACTIONS (11)
  - White blood cell count increased [Unknown]
  - Skin atrophy [Unknown]
  - Nausea [Unknown]
  - Weight increased [Unknown]
  - Feeling hot [Unknown]
  - Injection site pain [Unknown]
  - Skin wrinkling [Unknown]
  - Contusion [Unknown]
  - Hyperhidrosis [Unknown]
  - Urinary tract infection [Unknown]
  - Cutis laxa [Unknown]
